FAERS Safety Report 17101683 (Version 1)
Quarter: 2019Q4

REPORT INFORMATION
  Report Type: Spontaneous
  Country: CN (occurrence: CN)
  Receive Date: 20191202
  Receipt Date: 20191202
  Transmission Date: 20200122
  Serious: Yes (Death, Life-Threatening, Other)
  Sender: FDA-Public Use
  Company Number: CN-FRESENIUS KABI-FK201913226

PATIENT
  Age: 65 Year
  Sex: Male

DRUGS (5)
  1. DEXAMETHASONE. [Concomitant]
     Active Substance: DEXAMETHASONE
     Indication: PAIN
     Route: 065
  2. NIFEDIPINE. [Concomitant]
     Active Substance: NIFEDIPINE
     Indication: HYPERTENSION
     Route: 048
  3. ACYCLOVIR SODIUM (MANUFACTURER UNKNOWN) [Suspect]
     Active Substance: ACYCLOVIR SODIUM
     Indication: HERPES ZOSTER
     Route: 042
  4. VALACICLOVIR [Suspect]
     Active Substance: VALACYCLOVIR HYDROCHLORIDE
     Indication: HERPES ZOSTER
     Route: 048
  5. VALSARTAN. [Concomitant]
     Active Substance: VALSARTAN
     Indication: HYPERTENSION
     Route: 065

REACTIONS (3)
  - Neurotoxicity [Fatal]
  - Accidental overdose [Fatal]
  - Respiratory failure [Not Recovered/Not Resolved]
